FAERS Safety Report 5386221-2 (Version None)
Quarter: 2007Q3

REPORT INFORMATION
  Report Type: 
  Country: None (occurrence: None)
  Receive Date: 20070710
  Receipt Date: 20070710
  Transmission Date: 20080115
  Serious: Yes (Life-Threatening)
  Sender: FDA-Public Use
  Company Number: None

PATIENT
  Age: 56 Year
  Sex: Female
  Weight: 79.3795 kg

DRUGS (2)
  1. ALBUTEROL [Suspect]
     Indication: ASTHMA
     Dosage: 2 PUFFS 4 X DAILY INHAL
     Route: 055
     Dates: start: 20070706, end: 20070709
  2. ALBUTEROL [Suspect]
     Indication: BRONCHITIS
     Dosage: 2 PUFFS 4 X DAILY INHAL
     Route: 055
     Dates: start: 20070706, end: 20070709

REACTIONS (4)
  - DEVICE FAILURE [None]
  - DRUG INEFFECTIVE [None]
  - OXYGEN SATURATION DECREASED [None]
  - PHARMACEUTICAL PRODUCT COMPLAINT [None]
